FAERS Safety Report 19513440 (Version 1)
Quarter: 2021Q3

REPORT INFORMATION
  Report Type: Spontaneous
  Country: HR (occurrence: HR)
  Receive Date: 20210709
  Receipt Date: 20210709
  Transmission Date: 20211014
  Serious: Yes (Hospitalization, Other)
  Sender: FDA-Public Use
  Company Number: HR-MYLANLABS-2021M1039445

PATIENT
  Age: 51 Year
  Sex: Female

DRUGS (2)
  1. LUNATA [Suspect]
     Active Substance: ZOLPIDEM TARTRATE
     Indication: PRODUCT USED FOR UNKNOWN INDICATION
     Dosage: UNKNOWN QUANTITY OF LUNAT 10 MG
     Route: 048
     Dates: start: 20201202, end: 20201202
  2. LEPONEX [Suspect]
     Active Substance: CLOZAPINE
     Indication: PRODUCT USED FOR UNKNOWN INDICATION
     Dosage: 2 BLISTERA LEPONEXA OD 25 MG
     Route: 048
     Dates: start: 20201202, end: 20201202

REACTIONS (3)
  - Loss of consciousness [Recovered/Resolved]
  - Haemodynamic instability [Unknown]
  - Suicide attempt [Unknown]

NARRATIVE: CASE EVENT DATE: 20201202
